FAERS Safety Report 5731551-5 (Version None)
Quarter: 2008Q2

REPORT INFORMATION
  Report Type: 
  Country: None (occurrence: None)
  Receive Date: 20080506
  Receipt Date: 20080421
  Transmission Date: 20081010
  Serious: No
  Sender: FDA-Public Use
  Company Number: 2008S1005594

PATIENT
  Age: 72 Year
  Sex: Female
  Weight: 56.6996 kg

DRUGS (17)
  1. FENTANYL TRANSDERMAL SYSTEM [Suspect]
     Indication: ARTHRALGIA
     Dosage: 50 UG, EVERY HOUR, TRANSDERMAL
     Route: 062
     Dates: start: 20071116, end: 20071121
  2. TENORMIN [Concomitant]
  3. ASPIRIN [Concomitant]
  4. NORTRIPTYLINE HCL [Concomitant]
  5. LANOXIN [Concomitant]
  6. OMEPRAZOLE [Concomitant]
  7. ACTONEL [Concomitant]
  8. VICODIN [Concomitant]
  9. TYLENOL [Concomitant]
  10. ZITHROMAX [Concomitant]
  11. VITAMIN E [Concomitant]
  12. FEMARA [Concomitant]
  13. NORTRIPTYLINE HCL [Concomitant]
  14. KETOCONAZOLE [Concomitant]
  15. LOPROX [Concomitant]
  16. RHINOCORT [Concomitant]
  17. DAILY MULTIVITAMIN [Concomitant]

REACTIONS (8)
  - AGITATION [None]
  - ANXIETY [None]
  - CONFUSIONAL STATE [None]
  - FEAR [None]
  - FEELING ABNORMAL [None]
  - MEMORY IMPAIRMENT [None]
  - RESTLESSNESS [None]
  - SOMNOLENCE [None]
